FAERS Safety Report 23840891 (Version 1)
Quarter: 2024Q2

REPORT INFORMATION
  Report Type: Report from Study
  Country: FR (occurrence: FR)
  Receive Date: 20240510
  Receipt Date: 20240510
  Transmission Date: 20240715
  Serious: Yes (Hospitalization, Other)
  Sender: FDA-Public Use
  Company Number: FR-BAXTER-2024BAX017961

PATIENT
  Age: 59 Year
  Sex: Male
  Weight: 73.3 kg

DRUGS (13)
  1. CYCLOPHOSPHAMIDE [Suspect]
     Active Substance: CYCLOPHOSPHAMIDE
     Indication: Diffuse large B-cell lymphoma
     Dosage: 1378.21 MG, EVERY 3 WEEKS
     Route: 042
     Dates: start: 20240409
  2. DOXORUBICIN [Suspect]
     Active Substance: DOXORUBICIN
     Indication: Diffuse large B-cell lymphoma
     Dosage: 90 MG, EVERY 3 WEEKS, ONGOING
     Route: 042
     Dates: start: 20240409
  3. EPCORITAMAB [Suspect]
     Active Substance: EPCORITAMAB
     Indication: Diffuse large B-cell lymphoma
     Dosage: 0.16 MG, PRIMING DOSE, C1, D1, TOTAL
     Route: 058
     Dates: start: 20240410, end: 20240410
  4. EPCORITAMAB [Suspect]
     Active Substance: EPCORITAMAB
     Dosage: 0.8 MG, INTERMEDIATE DOSE, C1, D8, TOTAL
     Route: 058
     Dates: start: 20240416, end: 20240416
  5. EPCORITAMAB [Suspect]
     Active Substance: EPCORITAMAB
     Dosage: 48 MG, FULL DOSE; C1, D15, EVERY 1 WEEKS, ONGOING
     Route: 058
     Dates: start: 20240423
  6. RITUXIMAB [Suspect]
     Active Substance: RITUXIMAB
     Indication: Diffuse large B-cell lymphoma
     Dosage: 690 MG, EVERY 3 WEEKS, ONGOING
     Route: 042
     Dates: start: 20240409
  7. VINCRISTINE [Suspect]
     Active Substance: VINCRISTINE
     Indication: Diffuse large B-cell lymphoma
     Dosage: 2 MG, EVERY 3 WEEKS, ONGOING
     Route: 042
     Dates: start: 20240409
  8. PREDNISONE [Suspect]
     Active Substance: PREDNISONE
     Indication: Diffuse large B-cell lymphoma
     Dosage: DAILY, C1-6, DAY 1-5, ONGOING
     Route: 048
  9. BACTRIM [Concomitant]
     Active Substance: SULFAMETHOXAZOLE\TRIMETHOPRIM
     Indication: Infection prophylaxis
     Dosage: 800/160 MG, 3/WEEKS
     Route: 065
     Dates: start: 20240411
  10. VALACYCLOVIR HYDROCHLORIDE [Concomitant]
     Active Substance: VALACYCLOVIR HYDROCHLORIDE
     Indication: Infection prophylaxis
     Dosage: 500 MG, 2/DAYS
     Route: 065
     Dates: start: 20240411
  11. PREDNISONE [Concomitant]
     Active Substance: PREDNISONE
     Indication: Prophylaxis
     Dosage: 100 MG, EVERY 1 DAYS
     Route: 065
     Dates: start: 20240416, end: 20240419
  12. FILGRASTIM [Concomitant]
     Active Substance: FILGRASTIM
     Indication: Prophylaxis
     Dosage: 30 IU
     Route: 065
     Dates: start: 20240411
  13. LEUCOVORIN CALCIUM [Concomitant]
     Active Substance: LEUCOVORIN CALCIUM
     Indication: Anaemia prophylaxis
     Dosage: 25 MG, EVERY 1 WEEKS
     Route: 065
     Dates: start: 20240411

REACTIONS (1)
  - Cytokine release syndrome [Recovered/Resolved]

NARRATIVE: CASE EVENT DATE: 20240423
